FAERS Safety Report 11358830 (Version 1)
Quarter: 2015Q3

REPORT INFORMATION
  Report Type: Spontaneous
  Country: US (occurrence: None)
  Receive Date: 20150807
  Receipt Date: 20150807
  Transmission Date: 20151125
  Serious: Yes (Other)
  Sender: FDA-Public Use
  Company Number: None

PATIENT
  Age: 5 Year
  Sex: Female
  Weight: 23.13 kg

DRUGS (1)
  1. ORAJEL [Suspect]
     Active Substance: ALLANTOIN\BENZOCAINE\CAMPHOR (NATURAL)\DIMETHICONE\MENTHOL
     Indication: TOOTHACHE
     Dosage: ONCE DAILY?DATES OF USE: JUST ONCE TODAY

REACTIONS (6)
  - Toothache [None]
  - Hyperhidrosis [None]
  - Pain [None]
  - Blindness [None]
  - Eye movement disorder [None]
  - Feeling hot [None]

NARRATIVE: CASE EVENT DATE: 20150806
